FAERS Safety Report 11636869 (Version 11)
Quarter: 2017Q4

REPORT INFORMATION
  Report Type: Report from Study
  Country: GB (occurrence: GB)
  Receive Date: 20151016
  Receipt Date: 20171115
  Transmission Date: 20180320
  Serious: Yes (Hospitalization, Other)
  Sender: FDA-Public Use
  Company Number: GB-ROCHE-1646886

PATIENT
  Age: 78 Year
  Sex: Male

DRUGS (2)
  1. ESBRIET [Suspect]
     Active Substance: PIRFENIDONE
     Route: 048
     Dates: start: 20130923
  2. ESBRIET [Suspect]
     Active Substance: PIRFENIDONE
     Indication: IDIOPATHIC PULMONARY FIBROSIS
     Route: 048
     Dates: start: 20130923

REACTIONS (24)
  - Optic nerve injury [Unknown]
  - Weight decreased [Unknown]
  - Hypophagia [Unknown]
  - Rash [Unknown]
  - Fatigue [Not Recovered/Not Resolved]
  - Stress [Unknown]
  - Pulmonary function test decreased [Unknown]
  - Pulmonary embolism [Unknown]
  - Skin irritation [Unknown]
  - Nausea [Recovering/Resolving]
  - Vitamin D decreased [Not Recovered/Not Resolved]
  - Gastric infection [Unknown]
  - Dyspnoea [Unknown]
  - Herpes zoster [Unknown]
  - Blister rupture [Unknown]
  - Blister [Unknown]
  - Eczema [Recovered/Resolved]
  - Oxygen consumption increased [Unknown]
  - Hyperaesthesia [Unknown]
  - Allergy to chemicals [Unknown]
  - Skin discolouration [Unknown]
  - Neoplasm malignant [Unknown]
  - Erythema [Unknown]
  - General physical health deterioration [Unknown]

NARRATIVE: CASE EVENT DATE: 201510
